FAERS Safety Report 8989739 (Version 2)
Quarter: 2013Q1

REPORT INFORMATION
  Report Type: Spontaneous
  Country: JP (occurrence: JP)
  Receive Date: 20121228
  Receipt Date: 20130306
  Transmission Date: 20140127
  Serious: Yes (Other)
  Sender: FDA-Public Use
  Company Number: JP-SANOFI-AVENTIS-2012SA094344

PATIENT
  Age: 44 Year
  Sex: Male

DRUGS (4)
  1. TAXOTERE [Suspect]
     Indication: PROSTATE CANCER
     Dosage: DOCETAXEL HYDRATE WAS DILUTED WITH SOLUTION (ETHANOL) AND GIVEN ONCE EVERY THREE WEEKS
     Route: 042
     Dates: start: 20110916
  2. TAXOTERE [Suspect]
     Indication: PROSTATE CANCER
     Dosage: DOCETAXEL HYDRATE WAS DILUTED WITH SOLUTION (ETHANOL) AND GIVEN ONCE EVERY THREE WEEKS
     Route: 042
  3. PREDNISOLONE [Suspect]
     Indication: PROSTATE CANCER
     Route: 065
     Dates: start: 20110916
  4. ANTIANDROGENS [Concomitant]
     Indication: PROSTATE CANCER

REACTIONS (2)
  - Diabetes mellitus [Unknown]
  - Alopecia [Not Recovered/Not Resolved]
